FAERS Safety Report 22095874 (Version 1)
Quarter: 2023Q1

REPORT INFORMATION
  Report Type: Spontaneous
  Country: US (occurrence: US)
  Receive Date: 20230314
  Receipt Date: 20230314
  Transmission Date: 20230418
  Serious: Yes (Other)
  Sender: FDA-Public Use
  Company Number: US-BEH-2023156211

PATIENT
  Age: 60 Year
  Sex: Female

DRUGS (1)
  1. HUMATE-P [Suspect]
     Active Substance: HUMAN COAGULATION FACTOR VIII/VON WILLEBRAND FACTOR COMPLEX
     Indication: Von Willebrand^s disease
     Dosage: 4000 INTERNATIONAL UNIT, PRN
     Route: 042

REACTIONS (3)
  - Dermal cyst [Unknown]
  - Post procedural haemorrhage [Unknown]
  - Mass [Unknown]

NARRATIVE: CASE EVENT DATE: 20221101
